FAERS Safety Report 23338987 (Version 1)
Quarter: 2023Q4

REPORT INFORMATION
  Report Type: Spontaneous
  Country: US (occurrence: US)
  Receive Date: 20231226
  Receipt Date: 20231226
  Transmission Date: 20240110
  Serious: Yes (Other)
  Sender: FDA-Public Use
  Company Number: US-ABBVIE-5557748

PATIENT
  Age: 68 Year
  Sex: Male

DRUGS (1)
  1. PILOCARPINE [Suspect]
     Active Substance: PILOCARPINE
     Indication: Presbyopia
     Route: 047

REACTIONS (1)
  - Rhegmatogenous retinal detachment [Recovered/Resolved]
